FAERS Safety Report 14350959 (Version 9)
Quarter: 2025Q4

REPORT INFORMATION
  Report Type: Report from Study
  Country: EU (occurrence: EU)
  Receive Date: 20180104
  Receipt Date: 20251211
  Transmission Date: 20260118
  Serious: Yes (Other)
  Sender: MYLAN
  Company Number: EU-ROCHE-2037285

PATIENT
  Sex: Female

DRUGS (17)
  1. ZOLEDRONIC ACID [Suspect]
     Active Substance: ZOLEDRONIC ACID
     Indication: Product used for unknown indication
     Dosage: UNK
  2. EXEMESTANE [Suspect]
     Active Substance: EXEMESTANE
     Indication: Product used for unknown indication
     Dosage: UNK
  3. DOCETAXEL [Suspect]
     Active Substance: DOCETAXEL
     Indication: Product used for unknown indication
     Dosage: UNK
  4. LETROZOLE [Suspect]
     Active Substance: LETROZOLE
     Indication: Invasive ductal breast carcinoma
     Dosage: UNK
     Dates: start: 20140101, end: 20151001
  5. PALBOCICLIB [Suspect]
     Active Substance: PALBOCICLIB
     Indication: Product used for unknown indication
     Dosage: UNK
  6. PALBOCICLIB [Suspect]
     Active Substance: PALBOCICLIB
     Dosage: UNK
  7. FULVESTRANT [Suspect]
     Active Substance: FULVESTRANT
     Indication: Product used for unknown indication
     Dosage: UNK
  8. FULVESTRANT [Suspect]
     Active Substance: FULVESTRANT
     Dosage: UNK
  9. IBANDRONIC ACID [Suspect]
     Active Substance: IBANDRONIC ACID
     Indication: Product used for unknown indication
     Dosage: UNK
  10. AFINITOR [Suspect]
     Active Substance: EVEROLIMUS
     Indication: Breast cancer metastatic
     Dosage: 10 MILLIGRAM, QD
     Dates: start: 20170601
  11. AFINITOR [Suspect]
     Active Substance: EVEROLIMUS
     Dosage: UNK
  12. GOSERELIN [Suspect]
     Active Substance: GOSERELIN
     Indication: Product used for unknown indication
     Dosage: UNK
  13. GOSERELIN [Suspect]
     Active Substance: GOSERELIN
     Dosage: UNK
  14. CAPECITABINE [Suspect]
     Active Substance: CAPECITABINE
     Indication: Product used for unknown indication
     Dosage: UNK
  15. DENOSUMAB [Suspect]
     Active Substance: DENOSUMAB
     Indication: Product used for unknown indication
     Dosage: UNK
  16. XGEVA [Suspect]
     Active Substance: DENOSUMAB
     Indication: Product used for unknown indication
     Dosage: UNK
  17. XGEVA [Suspect]
     Active Substance: DENOSUMAB
     Dosage: UNK

REACTIONS (11)
  - Malignant neoplasm progression [Unknown]
  - Dermatitis [Unknown]
  - Metastases to adrenals [Unknown]
  - Metastases to skin [Unknown]
  - Metastases to pleura [Unknown]
  - Metastases to spine [Unknown]
  - Metastases to liver [Unknown]
  - Breast cancer [Unknown]
  - Metastases to bone [Unknown]
  - Invasive ductal breast carcinoma [Unknown]
  - Rash [Unknown]

NARRATIVE: CASE EVENT DATE: 20141101
